FAERS Safety Report 6703893-8 (Version None)
Quarter: 2010Q2

REPORT INFORMATION
  Report Type: 
  Country: None (occurrence: None)
  Receive Date: 20100430
  Receipt Date: 20100422
  Transmission Date: 20101027
  Serious: Yes (Other)
  Sender: FDA-Public Use
  Company Number: JP-ROCHE-699497

PATIENT
  Sex: Male

DRUGS (6)
  1. CAPECITABINE [Suspect]
     Indication: COLON CANCER
     Route: 048
     Dates: start: 20081214, end: 20081227
  2. CAPECITABINE [Suspect]
     Route: 048
     Dates: start: 20090104, end: 20090117
  3. CAPECITABINE [Suspect]
     Route: 048
     Dates: start: 20090316, end: 20090329
  4. CAPECITABINE [Suspect]
     Route: 048
     Dates: start: 20090409, end: 20090422
  5. CAPECITABINE [Suspect]
     Route: 048
     Dates: start: 20090430, end: 20090513
  6. DAI-KENCHU-TO [Concomitant]
     Dosage: FORM: PERORAL AGENT
     Route: 048

REACTIONS (1)
  - INTESTINAL OBSTRUCTION [None]
